FAERS Safety Report 5048234-X (Version None)
Quarter: 2006Q2

REPORT INFORMATION
  Report Type: 
  Country: None (occurrence: None)
  Receive Date: 20060601
  Receipt Date: 20060217
  Transmission Date: 20061013
  Serious: No
  Sender: FDA-Public Use
  Company Number: 2006PV008862

PATIENT
  Age: 41 Year
  Sex: Female
  Weight: 136.0791 kg

DRUGS (4)
  1. BYETTA [Suspect]
     Indication: DIABETES MELLITUS NON-INSULIN-DEPENDENT
     Dosage: 5 MCG;BID;SC
     Route: 058
     Dates: start: 20051228
  2. GLUCOPHAGE [Concomitant]
  3. TEGRETOL [Concomitant]
  4. AVANDIA [Concomitant]

REACTIONS (3)
  - HYPOTRICHOSIS [None]
  - LOSS OF CONTROL OF LEGS [None]
  - MUSCLE SPASMS [None]
